FAERS Safety Report 7901098 (Version 5)
Quarter: 2013Q2

REPORT INFORMATION
  Report Type: Spontaneous
  Country: US (occurrence: US)
  Receive Date: 20110415
  Receipt Date: 20130430
  Transmission Date: 20140414
  Serious: Yes (Hospitalization)
  Sender: FDA-Public Use
  Company Number: US-BAYER-2011-032052

PATIENT
  Age: 27 Year
  Sex: Female
  Weight: 91 kg

DRUGS (5)
  1. OCELLA [Suspect]
     Indication: ACNE
     Dosage: UNK
     Route: 048
     Dates: start: 200806, end: 200807
  2. OCELLA [Suspect]
     Indication: PREMENSTRUAL SYNDROME
  3. VICODIN [Concomitant]
  4. FOLIC ACID [Concomitant]
  5. B COMPLEX [B3,B6,B2,B1 HCL] [Concomitant]

REACTIONS (5)
  - Pulmonary embolism [None]
  - Deep vein thrombosis [None]
  - Injury [None]
  - Pain [None]
  - Thrombosis [None]
